FAERS Safety Report 15459101 (Version 1)
Quarter: 2018Q4

REPORT INFORMATION
  Report Type: Spontaneous
  Country: US (occurrence: US)
  Receive Date: 20181001
  Receipt Date: 20181001
  Transmission Date: 20190204
  Serious: No
  Sender: FDA-Public Use
  Company Number: None

PATIENT
  Age: 69 Year
  Sex: Female
  Weight: 81.65 kg

DRUGS (30)
  1. BLOOD SUGAR DIAGNOSTIC STRIP [Concomitant]
  2. DONEPEZIL HCL 10MG TAB SOL [Suspect]
     Active Substance: DONEPEZIL HYDROCHLORIDE
     Indication: DEMENTIA
     Dosage: ?          QUANTITY:1 TAB;?
     Route: 048
     Dates: start: 20140813, end: 20180818
  3. DIGESTIVE ENZYMES ORAL [Concomitant]
  4. FUROSEMIDE 20 MG TABLET [Concomitant]
     Active Substance: FUROSEMIDE
  5. SERTRALINE 100 MG TABLET [Concomitant]
  6. ACETAMINOPHEN 500 MG TABLET [Concomitant]
  7. ALBUTEROL 5 MG/ML [Concomitant]
  8. GABAPENTIN 300 MG CAPSULE [Concomitant]
     Active Substance: GABAPENTIN
  9. ASPIRIN 81 MG TABLET [Concomitant]
  10. SELENIUM 200 MCG TABLET [Concomitant]
  11. ATORVASTATIN 20 MG TABLET [Concomitant]
     Active Substance: ATORVASTATIN
  12. GABAPENTIN 100 MG CAPSULE [Concomitant]
  13. BIOTIN 5 MG CAPSULE [Concomitant]
  14. GARCINIA CAMBOGIA ORAL [Concomitant]
  15. KELP TABLET [Concomitant]
  16. L-LYSINE 500 MG BID [Concomitant]
  17. MONTELUKAST 10 MG TABLET [Concomitant]
  18. RANITIDINE 150 MG TABLET [Concomitant]
  19. ASCORBIC ACID (VITAMIN C) 500 MG TABLET [Concomitant]
  20. CETIRIZINE HCL 10 MG [Concomitant]
  21. METFORMIN 500 MG TABLET [Concomitant]
  22. METOPROLOL TARTRATE 50 MG TABLET [Concomitant]
  23. TRAMADOL 50 MG TABLET [Concomitant]
  24. LANCETS [Concomitant]
     Active Substance: DEVICE
  25. MELATONIN 3 MG LOZENGE [Concomitant]
  26. OMEGA-3 FATTY ACIDS-FISH OIL 3J00-1000 MG CAPSULE [Concomitant]
  27. VITAMIN E 400 UNIT CAPSULE [Concomitant]
  28. ONE-A-DAY NOS [Concomitant]
     Active Substance: MINERALS\VITAMINS
  29. ALLOPURINOL 100 MG TABLET [Concomitant]
     Active Substance: ALLOPURINOL
  30. CRANBERRY CONC-ASCORBIC ACID ORAL [Concomitant]

REACTIONS (5)
  - Flatulence [None]
  - Faeces discoloured [None]
  - Muscle spasms [None]
  - Incontinence [None]
  - Diarrhoea [None]

NARRATIVE: CASE EVENT DATE: 20180814
